FAERS Safety Report 14697127 (Version 1)
Quarter: 2018Q1

REPORT INFORMATION
  Report Type: Spontaneous
  Country: US (occurrence: US)
  Receive Date: 20180330
  Receipt Date: 20180330
  Transmission Date: 20180509
  Serious: No
  Sender: FDA-Public Use
  Company Number: US-SA-2017SA108231

PATIENT
  Age: 63 Year
  Sex: Male
  Weight: 88.45 kg

DRUGS (1)
  1. ALLEGRA [Suspect]
     Active Substance: FEXOFENADINE HYDROCHLORIDE
     Indication: ALLERGIC SINUSITIS
     Route: 048
     Dates: start: 20170106, end: 20170806

REACTIONS (2)
  - Muscle spasms [Recovered/Resolved]
  - Diarrhoea [Recovered/Resolved]

NARRATIVE: CASE EVENT DATE: 20170206
